FAERS Safety Report 8394180-3 (Version None)
Quarter: 2012Q2

REPORT INFORMATION
  Report Type: 
  Country: None (occurrence: None)
  Receive Date: 20120530
  Receipt Date: 20120522
  Transmission Date: 20120825
  Serious: Yes (Other)
  Sender: FDA-Public Use
  Company Number: PHHY2012NL045183

PATIENT
  Age: 26 Year
  Sex: Male

DRUGS (4)
  1. BACLOFEN [Concomitant]
     Dosage: 500 MG, TID
  2. VALPROIC ACID [Suspect]
     Dosage: 500 MG, BID
  3. CLEMASTINE [Concomitant]
     Dosage: 2 MG, BID
  4. ACETAMINOPHEN [Concomitant]
     Dosage: 1 G, QID

REACTIONS (17)
  - FACE OEDEMA [None]
  - ORAL MUCOSA EROSION [None]
  - LYMPHADENOPATHY [None]
  - SKIN PLAQUE [None]
  - FOLLICULITIS [None]
  - HEPATOSPLENOMEGALY [None]
  - LYMPHOCYTIC INFILTRATION [None]
  - DRUG RASH WITH EOSINOPHILIA AND SYSTEMIC SYMPTOMS [None]
  - RASH GENERALISED [None]
  - PETECHIAE [None]
  - LIVER DISORDER [None]
  - RASH PUSTULAR [None]
  - HEPATIC INFILTRATION EOSINOPHILIC [None]
  - SCLERAL DISCOLOURATION [None]
  - HEPATOMEGALY [None]
  - HEPATIC FUNCTION ABNORMAL [None]
  - HILAR LYMPHADENOPATHY [None]
